FAERS Safety Report 11857759 (Version 1)
Quarter: 2015Q4

REPORT INFORMATION
  Report Type: Spontaneous
  Country: US (occurrence: None)
  Receive Date: 20151221
  Receipt Date: 20151221
  Transmission Date: 20160305
  Serious: Yes (Other)
  Sender: FDA-Public Use
  Company Number: None

PATIENT
  Age: 63 Year
  Sex: Male
  Weight: 88.45 kg

DRUGS (9)
  1. CLONAZEPAM. [Concomitant]
     Active Substance: CLONAZEPAM
  2. FENTANYL TRANSDERMAL SYSTEM [Concomitant]
     Active Substance: FENTANYL
  3. KEPPRA [Concomitant]
     Active Substance: LEVETIRACETAM
  4. LISINOPRIL. [Concomitant]
     Active Substance: LISINOPRIL
  5. FLOMAX [Concomitant]
     Active Substance: TAMSULOSIN HYDROCHLORIDE
  6. ZOCOR [Concomitant]
     Active Substance: SIMVASTATIN
  7. MYRBETRIQ [Suspect]
     Active Substance: MIRABEGRON
     Indication: BLOOD PRESSURE MEASUREMENT
     Dosage: 25MG (1 PILL) ONCE DAILY TAKEN BY MOUTH
     Route: 048
     Dates: start: 20151119, end: 20151123
  8. CYMBALTA [Concomitant]
     Active Substance: DULOXETINE HYDROCHLORIDE
  9. NEXIUM [Concomitant]
     Active Substance: ESOMEPRAZOLE MAGNESIUM

REACTIONS (2)
  - Blood pressure increased [None]
  - Seizure [None]

NARRATIVE: CASE EVENT DATE: 20151123
